FAERS Safety Report 15846363 (Version 1)
Quarter: 2019Q1

REPORT INFORMATION
  Report Type: Report from Study
  Country: TW (occurrence: TW)
  Receive Date: 20190120
  Receipt Date: 20190120
  Transmission Date: 20190417
  Serious: Yes (Hospitalization, Other)
  Sender: FDA-Public Use
  Company Number: TW-UCBSA-2019001115

PATIENT
  Age: 0 Year
  Sex: Female
  Weight: 2.15 kg

DRUGS (16)
  1. BOKEY EMC [Concomitant]
     Indication: ARTHRITIS
  2. BOKEY EMC [Concomitant]
     Indication: NASOPHARYNGITIS
  3. SALAZINE [Concomitant]
     Active Substance: SULFASALAZINE
     Indication: URINARY TRACT INFECTION
     Dosage: 500 MG, 2X/DAY (BID)
  4. BOKEY EMC [Concomitant]
     Indication: TOOTHACHE
  5. BOKEY EMC [Concomitant]
     Indication: RHEUMATIC FEVER
  6. BOKEY EMC [Concomitant]
     Indication: PYREXIA
  7. ACETAMINOPHEN. [Concomitant]
     Active Substance: ACETAMINOPHEN
     Indication: ANALGESIC THERAPY
     Dosage: 500 MG, EVERY 6 HOURS AS NEEDED
  8. BOKEY EMC [Concomitant]
     Indication: ANTICOAGULANT THERAPY
  9. SALAZINE [Concomitant]
     Active Substance: SULFASALAZINE
     Indication: INFECTION PROPHYLAXIS
  10. CERTOLIZUMAB PEGOL [Suspect]
     Active Substance: CERTOLIZUMAB PEGOL
     Indication: PRODUCT USED FOR UNKNOWN INDICATION
     Dosage: UNK
     Route: 064
  11. SALAZINE [Concomitant]
     Active Substance: SULFASALAZINE
     Indication: MUSCLE STRAIN
  12. BOKEY EMC [Concomitant]
     Indication: RHEUMATOID ARTHRITIS
  13. BOKEY EMC [Concomitant]
     Indication: MYALGIA
     Dosage: 100 MG, ONCE DAILY (QD)
  14. BOKEY EMC [Concomitant]
     Indication: HEADACHE
  15. BOKEY EMC [Concomitant]
     Indication: BURSITIS
  16. BOKEY EMC [Concomitant]
     Indication: ARTHRITIS

REACTIONS (4)
  - Foetal exposure during pregnancy [Unknown]
  - Low birth weight baby [Unknown]
  - Apgar score abnormal [Unknown]
  - Premature baby [Unknown]

NARRATIVE: CASE EVENT DATE: 2018
